FAERS Safety Report 4523650-0 (Version None)
Quarter: 2004Q4

REPORT INFORMATION
  Report Type: 
  Country: None (occurrence: None)
  Receive Date: 20041208
  Receipt Date: 20041129
  Transmission Date: 20050328
  Serious: Yes (Other)
  Sender: FDA-Public Use
  Company Number: K200401833

PATIENT
  Age: 86 Year
  Sex: Female
  Weight: 46.3 kg

DRUGS (8)
  1. LEVOXYL [Suspect]
     Indication: HYPOTHYROIDISM
     Dosage: 25 MCG, QD, ORAL
     Route: 048
     Dates: start: 20020101
  2. COREG [Concomitant]
  3. DIGOVIN [Concomitant]
  4. PLAVIX [Concomitant]
  5. LIPITOR [Concomitant]
  6. LASIX [Concomitant]
  7. ALTACE [Concomitant]
  8. FLAGYL (METRONIDAZOLE BENZOATE) [Concomitant]

REACTIONS (3)
  - CHOKING [None]
  - DYSGEUSIA [None]
  - RETCHING [None]
